FAERS Safety Report 17293171 (Version 1)
Quarter: 2020Q1

REPORT INFORMATION
  Report Type: Spontaneous
  Country: US (occurrence: US)
  Receive Date: 20200119
  Receipt Date: 20200119
  Transmission Date: 20200409
  Serious: Yes (Hospitalization)
  Sender: FDA-Public Use
  Company Number: None

PATIENT
  Age: 47 Year
  Weight: 85 kg

DRUGS (7)
  1. METFORMIN 1G QPM [Concomitant]
  2. SYNJARDY XR [Suspect]
     Active Substance: EMPAGLIFLOZIN\METFORMIN HYDROCHLORIDE
     Route: 048
  3. GABAPENTIN 300MG TID [Concomitant]
  4. ASPIRIN 81MG QDAY [Concomitant]
  5. DOXYCYCLINE 100MG QDAY [Concomitant]
  6. OZEMPIC 1MG QWEEKLY [Concomitant]
  7. PLAVIX 75MG QDAY [Concomitant]

REACTIONS (1)
  - Diabetic ketoacidosis [None]

NARRATIVE: CASE EVENT DATE: 20190119
